FAERS Safety Report 8490295-X (Version None)
Quarter: 2012Q3

REPORT INFORMATION
  Report Type: 
  Country: None (occurrence: None)
  Receive Date: 20120705
  Receipt Date: 20120530
  Transmission Date: 20120928
  Serious: No
  Sender: FDA-Public Use
  Company Number: US-BAUSCH-2012BL003687

PATIENT
  Age: 23 Year
  Sex: Male

DRUGS (4)
  1. OPCON-A [Suspect]
     Indication: EYE ALLERGY
     Route: 047
     Dates: start: 20120529, end: 20120529
  2. OPCON-A [Suspect]
     Indication: EYE PRURITUS
     Route: 047
     Dates: start: 20120529, end: 20120529
  3. OPCON-A [Suspect]
     Route: 047
     Dates: start: 20120529, end: 20120529
  4. OPCON-A [Suspect]
     Route: 047
     Dates: start: 20120529, end: 20120529

REACTIONS (4)
  - CHROMATOPSIA [None]
  - VISION BLURRED [None]
  - EYE PAIN [None]
  - MYDRIASIS [None]
